FAERS Safety Report 7894393-0 (Version None)
Quarter: 2011Q4

REPORT INFORMATION
  Report Type: 
  Country: None (occurrence: None)
  Receive Date: 20111104
  Receipt Date: 20111026
  Transmission Date: 20120403
  Serious: Yes (Hospitalization)
  Sender: FDA-Public Use
  Company Number: BR-ASTRAZENECA-2011SE64982

PATIENT
  Age: 80 Year
  Sex: Male
  Weight: 62 kg

DRUGS (3)
  1. ATENOLOL [Suspect]
     Indication: HYPERTENSION
     Route: 048
  2. CASODEX [Suspect]
     Indication: PROSTATE CANCER
     Route: 048
     Dates: start: 20110401
  3. LOSARTAN POTASSIUM [Concomitant]
     Indication: HYPERTENSION
     Route: 048

REACTIONS (3)
  - PROSTATIC SPECIFIC ANTIGEN INCREASED [None]
  - WEIGHT DECREASED [None]
  - PROSTATE CANCER [None]
